FAERS Safety Report 8011582-5 (Version None)
Quarter: 2011Q4

REPORT INFORMATION
  Report Type: 
  Country: None (occurrence: None)
  Receive Date: 20111228
  Receipt Date: 20111220
  Transmission Date: 20120403
  Serious: Yes (Hospitalization)
  Sender: FDA-Public Use
  Company Number: JP-CEPHALON-2011004525

PATIENT
  Sex: Male
  Weight: 52 kg

DRUGS (14)
  1. REBAMIPIDE [Concomitant]
     Dates: start: 20101119
  2. SULFAMETHOXAZOLE AND TRIMETHOPRIM [Concomitant]
     Dates: start: 20101119
  3. SARPOGRELATE HYDROCHLORIDE [Concomitant]
     Dates: start: 20101119
  4. BENDAMUSTINE HCL [Suspect]
     Route: 042
     Dates: start: 20110913, end: 20110914
  5. WARFARIN POTASSIUM [Concomitant]
     Dates: start: 20101119
  6. TELMISARTAN [Concomitant]
     Dates: start: 20101119
  7. DISOPYRAMIDE [Concomitant]
     Dates: start: 20101119
  8. LANSOPRAZOLE [Concomitant]
     Dates: start: 20101119
  9. BENDAMUSTINE HCL [Suspect]
     Indication: B-CELL LYMPHOMA
     Route: 042
     Dates: start: 20110802, end: 20110803
  10. ALLOPURINOL [Concomitant]
     Dates: start: 20101119
  11. DILTIAZEM [Concomitant]
     Dates: start: 20101119
  12. NICORANDIL [Concomitant]
     Dates: start: 20101119
  13. ASPIRIN [Concomitant]
     Dates: start: 20101119
  14. BISOPROLOL FUMARATE [Concomitant]
     Dates: start: 20101119

REACTIONS (2)
  - SICK SINUS SYNDROME [None]
  - NEUTROPHIL COUNT DECREASED [None]
